FAERS Safety Report 15404331 (Version 2)
Quarter: 2018Q3

REPORT INFORMATION
  Report Type: Report from Study
  Country: FR (occurrence: FR)
  Receive Date: 20180919
  Receipt Date: 20180927
  Transmission Date: 20181010
  Serious: Yes (Hospitalization, Other)
  Sender: FDA-Public Use
  Company Number: FR-SEATTLE GENETICS-2017SGN01254

PATIENT
  Age: 44 Year
  Sex: Male
  Weight: 77 kg

DRUGS (5)
  1. SULFAMETHOXAZOLE, TRIMETHOPRIM [Concomitant]
     Active Substance: SULFAMETHOXAZOLE\TRIMETHOPRIM
     Indication: PROPHYLAXIS
     Dosage: UNK
     Route: 048
     Dates: start: 20170101
  2. SULFAMETHOXAZOLE [Concomitant]
     Active Substance: SULFAMETHOXAZOLE
     Indication: PROPHYLAXIS
     Dosage: UNK
     Route: 048
     Dates: start: 20170101
  3. PREGABALIN. [Concomitant]
     Active Substance: PREGABALIN
     Indication: PROPHYLAXIS
     Dosage: 300 MG, UNK
     Route: 048
     Dates: start: 20170101
  4. VALACICLOVIR HYDROCHLORIDE [Concomitant]
     Active Substance: VALACYCLOVIR HYDROCHLORIDE
     Indication: PROPHYLAXIS
     Dosage: UNK
     Route: 048
     Dates: start: 20170101
  5. BRENTUXIMAB VEDOTIN?MPI [Suspect]
     Active Substance: BRENTUXIMAB VEDOTIN
     Indication: HODGKIN^S DISEASE
     Dosage: 130 MG, UNK
     Route: 042
     Dates: start: 20170424, end: 20170627

REACTIONS (11)
  - General physical health deterioration [Not Recovered/Not Resolved]
  - Neuropathy peripheral [Not Recovered/Not Resolved]
  - Off label use [Unknown]
  - Thrombocytopenia [Not Recovered/Not Resolved]
  - Weight decreased [Not Recovered/Not Resolved]
  - Asthenia [Not Recovered/Not Resolved]
  - Nausea [Not Recovered/Not Resolved]
  - Fatigue [Recovered/Resolved]
  - Vertigo [Not Recovered/Not Resolved]
  - Hyperhidrosis [Not Recovered/Not Resolved]
  - Decreased appetite [Not Recovered/Not Resolved]

NARRATIVE: CASE EVENT DATE: 20170424
